FAERS Safety Report 9736820 (Version 1)
Quarter: 2013Q4

REPORT INFORMATION
  Report Type: Spontaneous
  Country: US (occurrence: US)
  Receive Date: 20131206
  Receipt Date: 20131206
  Transmission Date: 20140711
  Serious: No
  Sender: FDA-Public Use
  Company Number: US-BIOGENIDEC-2013BI091170

PATIENT
  Age: 59 Year
  Sex: Female
  Weight: 67 kg

DRUGS (7)
  1. TECFIDERA [Suspect]
     Indication: MULTIPLE SCLEROSIS
     Route: 048
     Dates: start: 20130802
  2. TECFIDERA [Suspect]
     Indication: MULTIPLE SCLEROSIS
     Route: 048
  3. CALCIUM [Concomitant]
  4. MULTIVITAMIN [Concomitant]
  5. VITAMIN D [Concomitant]
  6. LEVOTHYROXIN [Concomitant]
  7. VALACYCLOVIR [Concomitant]

REACTIONS (2)
  - Flushing [Recovered/Resolved]
  - Erythema [Unknown]
